FAERS Safety Report 9783341 (Version 1)
Quarter: 2013Q4

REPORT INFORMATION
  Report Type: Spontaneous
  Country: US (occurrence: None)
  Receive Date: 20131223
  Receipt Date: 20131223
  Transmission Date: 20140711
  Serious: Yes (Death)
  Sender: FDA-Public Use
  Company Number: 2013P1021968

PATIENT
  Age: 62 Year
  Sex: Female

DRUGS (11)
  1. DONEPEZIL HCL [Suspect]
     Route: 048
     Dates: start: 200805
  2. PROPRANOLOL [Suspect]
     Route: 048
  3. DIPHENHYDRAMINE [Suspect]
  4. ALPRAZOLAM [Suspect]
     Route: 048
  5. ZIPRASIDONE [Suspect]
     Route: 048
  6. VALPROIC ACID [Suspect]
  7. METFORMIN [Suspect]
     Indication: GLUCOSE TOLERANCE IMPAIRED
     Route: 048
  8. SIMVASTATIN [Suspect]
  9. LOFIBRA [Suspect]
     Indication: BLOOD CHOLESTEROL ABNORMAL
  10. SALSALATE [Suspect]
     Indication: ARTHRALGIA
  11. DIVALPROEX (VALPROATE SEMISODIUM) [Suspect]

REACTIONS (3)
  - Accidental death [None]
  - Toxicity to various agents [None]
  - Intentional drug misuse [None]
